FAERS Safety Report 5704026-7 (Version None)
Quarter: 2008Q2

REPORT INFORMATION
  Report Type: 
  Country: None (occurrence: None)
  Receive Date: 20080414
  Receipt Date: 20080402
  Transmission Date: 20081010
  Serious: Yes (Other)
  Sender: FDA-Public Use
  Company Number: DE-WYE-H03527008

PATIENT
  Age: 19 Year
  Sex: Male

DRUGS (2)
  1. CORDAREX [Suspect]
     Indication: ATRIAL TACHYCARDIA
     Dosage: UNKNOWN
     Dates: start: 20080301
  2. MARCUMAR [Concomitant]
     Indication: ATRIAL TACHYCARDIA
     Dosage: UNKNOWN
     Route: 048
     Dates: start: 20080330

REACTIONS (1)
  - BLOOD CREATINE PHOSPHOKINASE INCREASED [None]
